FAERS Safety Report 20512819 (Version 1)
Quarter: 2022Q1

REPORT INFORMATION
  Report Type: Spontaneous
  Country: AU (occurrence: AU)
  Receive Date: 20220224
  Receipt Date: 20220224
  Transmission Date: 20220423
  Serious: Yes (Other)
  Sender: FDA-Public Use
  Company Number: None

PATIENT
  Age: 67 Year
  Sex: Female

DRUGS (7)
  1. ETANERCEPT [Suspect]
     Active Substance: ETANERCEPT
     Indication: Palmoplantar pustulosis
     Route: 065
  2. APREMILAST [Suspect]
     Active Substance: APREMILAST
     Indication: Palmoplantar pustulosis
     Dosage: UNKNOWN
     Route: 065
  3. APREMILAST [Suspect]
     Active Substance: APREMILAST
     Indication: Psoriatic arthropathy
  4. APREMILAST [Suspect]
     Active Substance: APREMILAST
     Indication: Psoriasis
  5. METHOTREXATE [Suspect]
     Active Substance: METHOTREXATE
     Indication: Palmoplantar pustulosis
     Dosage: UNKNOWN
     Route: 065
  6. SECUKINUMAB [Concomitant]
     Active Substance: SECUKINUMAB
     Indication: Palmoplantar pustulosis
     Dosage: UNKNOWN
     Route: 065
  7. ACITRETIN [Concomitant]
     Active Substance: ACITRETIN
     Indication: Product used for unknown indication
     Route: 065

REACTIONS (6)
  - Psoriatic arthropathy [Unknown]
  - Palmoplantar pustulosis [Unknown]
  - Psoriasis [Unknown]
  - Depression [Unknown]
  - Fear of disease [Unknown]
  - Product use in unapproved indication [Unknown]
